FAERS Safety Report 16699967 (Version 1)
Quarter: 2019Q3

REPORT INFORMATION
  Report Type: Spontaneous
  Country: US (occurrence: US)
  Receive Date: 20190813
  Receipt Date: 20190813
  Transmission Date: 20191004
  Serious: Yes (Other)
  Sender: FDA-Public Use
  Company Number: US-TEIKOKU PHARMA USA-TPU2019-00580

PATIENT
  Sex: Male
  Weight: 86.26 kg

DRUGS (1)
  1. LIDOCAINE PATCH [Suspect]
     Active Substance: LIDOCAINE
     Indication: PAIN
     Dosage: APPLY 2 PATCHES TO AFFECTED AREA ONCE DAILY TO SKIN FOR UP TO 12 HOURS, 12 HOURS ON AND 12 HOURS OFF
     Route: 061

REACTIONS (3)
  - Spinal fracture [Unknown]
  - Drug ineffective for unapproved indication [Unknown]
  - Brain operation [Unknown]

NARRATIVE: CASE EVENT DATE: 2016
